FAERS Safety Report 25588685 (Version 2)
Quarter: 2025Q3

REPORT INFORMATION
  Report Type: Spontaneous
  Country: EU (occurrence: EU)
  Receive Date: 20250722
  Receipt Date: 20250807
  Transmission Date: 20251021
  Serious: No
  Sender: BridgeBio Pharma
  Company Number: EU-BAYER-2025A087421

PATIENT
  Age: 75 Year

DRUGS (2)
  1. ACORAMIDIS [Suspect]
     Active Substance: ACORAMIDIS
     Dates: start: 20250328, end: 20250704
  2. ACORAMIDIS [Suspect]
     Active Substance: ACORAMIDIS
     Dates: start: 20250710

REACTIONS (1)
  - Gastrointestinal disorder [Not Recovered/Not Resolved]

NARRATIVE: CASE EVENT DATE: 20250101
